FAERS Safety Report 17723408 (Version 1)
Quarter: 2020Q2

REPORT INFORMATION
  Report Type: Spontaneous
  Country: US (occurrence: US)
  Receive Date: 20200429
  Receipt Date: 20200429
  Transmission Date: 20200714
  Serious: Yes (Hospitalization)
  Sender: FDA-Public Use
  Company Number: None

PATIENT
  Sex: Male
  Weight: 148 kg

DRUGS (3)
  1. G-CSF (FILGRASTIM, AMGEN) [Suspect]
     Active Substance: FILGRASTIM
  2. IFOSFAMIDE. [Suspect]
     Active Substance: IFOSFAMIDE
  3. TAXOL [Suspect]
     Active Substance: PACLITAXEL

REACTIONS (4)
  - Capillary leak syndrome [None]
  - Pulmonary oedema [None]
  - Haemoglobin decreased [None]
  - Respiratory failure [None]

NARRATIVE: CASE EVENT DATE: 20200423
